FAERS Safety Report 9981859 (Version 1)
Quarter: 2014Q1

REPORT INFORMATION
  Report Type: Report from Study
  Country: US (occurrence: US)
  Receive Date: 20140307
  Receipt Date: 20140307
  Transmission Date: 20141002
  Serious: No
  Sender: FDA-Public Use
  Company Number: US-ABBVIE-13P-163-1180055-00

PATIENT
  Sex: Female
  Weight: 104.42 kg

DRUGS (3)
  1. HUMIRA [Suspect]
     Indication: CROHN^S DISEASE
     Dosage: FOUR PENS ON DAY ONE
     Route: 058
  2. HUMIRA [Suspect]
     Dosage: TWO PENS ON DAY FIFTEEN, AS DIRECTED
     Route: 058
  3. ADVIL [Concomitant]
     Indication: PRODUCT USED FOR UNKNOWN INDICATION

REACTIONS (5)
  - Fistula discharge [Unknown]
  - Female genital tract fistula [Unknown]
  - Diarrhoea [Unknown]
  - Back pain [Unknown]
  - Injection site pain [Unknown]
